FAERS Safety Report 4810908-0 (Version None)
Quarter: 2005Q4

REPORT INFORMATION
  Report Type: 
  Country: None (occurrence: None)
  Receive Date: 20051027
  Receipt Date: 20051018
  Transmission Date: 20060501
  Serious: Yes (Disabling)
  Sender: FDA-Public Use
  Company Number: 2005UW15686

PATIENT
  Sex: Female

DRUGS (3)
  1. SEROQUEL [Suspect]
     Route: 048
     Dates: start: 20000201, end: 20040601
  2. RISPERDAL [Suspect]
     Dates: start: 20000201, end: 20040601
  3. ZYPREXA [Suspect]
     Dates: start: 20000201, end: 20040601

REACTIONS (3)
  - DIABETES MELLITUS [None]
  - INJURY [None]
  - PANCREATITIS CHRONIC [None]
